FAERS Safety Report 9099904 (Version 1)
Quarter: 2013Q1

REPORT INFORMATION
  Report Type: Report from Study
  Country: US (occurrence: US)
  Receive Date: 20130214
  Receipt Date: 20130214
  Transmission Date: 20140127
  Serious: Yes (Other)
  Sender: FDA-Public Use
  Company Number: US-ROCHE-1190623

PATIENT
  Sex: Male
  Weight: 152.09 kg

DRUGS (12)
  1. EFALIZUMAB [Suspect]
     Indication: PSORIASIS
     Route: 065
     Dates: start: 2002, end: 2004
  2. INFLIXIMAB [Suspect]
     Indication: PSORIATIC ARTHROPATHY
     Route: 065
     Dates: start: 2008, end: 20120428
  3. INFLIXIMAB [Suspect]
     Indication: PSORIASIS
  4. ETANERCEPT [Suspect]
     Indication: PSORIASIS
     Route: 065
     Dates: start: 2004, end: 2008
  5. ADALIMUMAB [Suspect]
     Indication: PSORIATIC ARTHROPATHY
     Route: 058
     Dates: start: 20120515, end: 20120703
  6. ADALIMUMAB [Suspect]
     Route: 058
     Dates: start: 20120710, end: 20130115
  7. KLONOPIN [Concomitant]
     Indication: IRRITABILITY
     Route: 065
  8. MONTELUKAST SODIUM [Concomitant]
     Indication: ASTHMA
  9. RESCUE REMEDY [Concomitant]
     Indication: ASTHMA
     Route: 050
  10. LANSOPRAZOLE [Concomitant]
  11. BUPROPION HYDROCHLORIDE [Concomitant]
     Indication: DEPRESSION
  12. SERTRALINE HYDROCHLORIDE [Concomitant]
     Indication: ANXIETY

REACTIONS (5)
  - Skin lesion [Unknown]
  - Skin haemorrhage [Unknown]
  - Primary amyloidosis [Unknown]
  - Pruritus [Unknown]
  - Pain of skin [Unknown]
